FAERS Safety Report 26111826 (Version 1)
Quarter: 2025Q4

REPORT INFORMATION
  Report Type: Report from Study
  Country: GB (occurrence: GB)
  Receive Date: 20251202
  Receipt Date: 20251202
  Transmission Date: 20260118
  Serious: Yes (Other)
  Sender: ROCHE
  Company Number: GB-ROCHE-3427290

PATIENT
  Age: 72 Year
  Sex: Female
  Weight: 80.7 kg

DRUGS (33)
  1. ATEZOLIZUMAB [Suspect]
     Active Substance: ATEZOLIZUMAB
     Indication: Hepatocellular carcinoma
     Route: 042
     Dates: start: 20221222
  2. BEVACIZUMAB [Suspect]
     Active Substance: BEVACIZUMAB
     Indication: Hepatocellular carcinoma
     Route: 065
     Dates: start: 20221222
  3. AMITRIPTYLINE [Concomitant]
     Active Substance: AMITRIPTYLINE
     Dates: start: 20220822
  4. AMITRIPTYLINE [Concomitant]
     Active Substance: AMITRIPTYLINE
     Dates: start: 20211208
  5. CARVEDILOL [Concomitant]
     Active Substance: CARVEDILOL
     Dates: start: 20221207
  6. ORAMORPH 10MG [Concomitant]
     Dates: start: 20220822
  7. AZITHROMYCIN ANHYDROUS [Concomitant]
     Active Substance: AZITHROMYCIN ANHYDROUS
     Dates: start: 20220628
  8. AZITHROMYCIN ANHYDROUS [Concomitant]
     Active Substance: AZITHROMYCIN ANHYDROUS
     Dates: start: 20211208
  9. LOPERAMIDE [Concomitant]
     Active Substance: LOPERAMIDE
     Dates: start: 20220622
  10. ATORVASTATIN [Concomitant]
     Active Substance: ATORVASTATIN
     Dates: start: 20220222
  11. SALBUTAMOL 100MCG [Concomitant]
     Dates: start: 20210301
  12. LANSOPRAZOLE [Concomitant]
     Active Substance: LANSOPRAZOLE
     Dates: start: 20200224
  13. CETIRIZINE [Concomitant]
     Active Substance: CETIRIZINE HYDROCHLORIDE
     Dates: start: 20230112
  14. AMLODIPINE, 5MG [Concomitant]
     Dates: start: 20230223
  15. FRESUBIN ENERGY DRINK 150ML [Concomitant]
     Dates: start: 20221115
  16. CARVEDILOL [Concomitant]
     Active Substance: CARVEDILOL
     Dates: start: 20221207
  17. DALTEPARIN 5000U [Concomitant]
     Dates: start: 20250226
  18. DALTEPARIN 5000U [Concomitant]
     Dates: start: 20250311
  19. TEVA INHALER 1 PUFF(SALBUTOMOL) [Concomitant]
     Dosage: 1 PUFF
     Dates: start: 20161026
  20. GENTAMYCIN 392.52MG [Concomitant]
     Dates: start: 20250227, end: 20250227
  21. CO-TRIMOXAZOLE 160MG + 800MG [Concomitant]
     Dates: start: 20250228, end: 20250310
  22. FEXOFENADINE HYDROCHLORIDE [Concomitant]
     Active Substance: FEXOFENADINE HYDROCHLORIDE
     Dates: start: 20250311
  23. CHLORPHENAMINE 10MG [Concomitant]
     Dates: start: 20250311
  24. ZOPICLONE 3.75MG [Concomitant]
     Dates: start: 20250311
  25. TERBINAFINE 1% CREAM 1 APPLICATION [Concomitant]
     Dates: start: 20250311
  26. CLOBETASOL (DERMOVATE) 0.05% CREAM 1APPLICATION [Concomitant]
     Dates: start: 20250311
  27. MORPHINE SULPHATESOLUTION [Concomitant]
     Dates: start: 20250311, end: 20250316
  28. BECLOMETASONE (QVAR) 50MICROGRAMS/ACTUATIONINHALER 50MCG [Concomitant]
     Dates: start: 20250311
  29. SALBUTAMOL 100MICROGRAMS/ACTUATIONINHALER 100MCG [Concomitant]
     Dates: start: 20250311
  30. MEROPENEM [Concomitant]
     Active Substance: MEROPENEM
  31. MEROPENEM [Concomitant]
     Active Substance: MEROPENEM
     Dates: start: 20250611, end: 20250611
  32. TAZOCIN 4.5GM [Concomitant]
     Dates: start: 20250609, end: 20250609
  33. efluelda trivalent flu/vac/split high dose inj 0.5ml [Concomitant]
     Dates: start: 20251017, end: 20251017

REACTIONS (1)
  - Neuropathy peripheral [Not Recovered/Not Resolved]

NARRATIVE: CASE EVENT DATE: 20230816
